FAERS Safety Report 7371464-9 (Version None)
Quarter: 2011Q1

REPORT INFORMATION
  Report Type: 
  Country: None (occurrence: None)
  Receive Date: 20110322
  Receipt Date: 20110322
  Transmission Date: 20110831
  Serious: Yes (Hospitalization)
  Sender: FDA-Public Use
  Company Number: None

PATIENT
  Age: 34 Month
  Sex: Male
  Weight: 14.5151 kg

DRUGS (1)
  1. CEFDINIR [Suspect]
     Indication: EAR INFECTION
     Dosage: 5ML 2 TIMES A DAY PO
     Route: 048
     Dates: start: 20110310, end: 20110318

REACTIONS (11)
  - PRURITUS [None]
  - SCREAMING [None]
  - PAIN [None]
  - SERUM SICKNESS [None]
  - JOINT SWELLING [None]
  - FEELING HOT [None]
  - URTICARIA [None]
  - SWELLING [None]
  - GAIT DISTURBANCE [None]
  - ERYTHEMA MULTIFORME [None]
  - ARTHRALGIA [None]
